FAERS Safety Report 6085524-6 (Version None)
Quarter: 2009Q1

REPORT INFORMATION
  Report Type: 
  Country: None (occurrence: None)
  Receive Date: 20090218
  Receipt Date: 20090205
  Transmission Date: 20090719
  Serious: Yes (Death, Hospitalization)
  Sender: FDA-Public Use
  Company Number: 200831956GPV

PATIENT
  Age: 66 Year
  Sex: Male

DRUGS (6)
  1. FLUDARA [Suspect]
     Indication: CHRONIC LYMPHOCYTIC LEUKAEMIA
     Dosage: 40MG/M2
     Route: 048
     Dates: start: 20080204, end: 20080206
  2. FLUDARA [Suspect]
     Indication: CHRONIC LYMPHOCYTIC LEUKAEMIA
     Dosage: 40MG/M2
     Route: 048
     Dates: start: 20080630, end: 20080702
  3. MACCAMPATH [Suspect]
     Indication: CHRONIC LYMPHOCYTIC LEUKAEMIA
     Dosage: NI;ORAL, 30 MG/M2;ORAL
     Route: 048
     Dates: start: 20080204, end: 20080206
  4. MACCAMPATH [Suspect]
     Indication: CHRONIC LYMPHOCYTIC LEUKAEMIA
     Dosage: NI;ORAL, 30 MG/M2;ORAL
     Route: 048
     Dates: start: 20080630, end: 20080702
  5. CYCLOPHOSPHAMIDE [Suspect]
     Indication: CHRONIC LYMPHOCYTIC LEUKAEMIA
     Dosage: NI;ORAL, 500 MG;ORAL
     Route: 048
     Dates: start: 20080204, end: 20080206
  6. CYCLOPHOSPHAMIDE [Suspect]
     Indication: CHRONIC LYMPHOCYTIC LEUKAEMIA
     Dosage: NI;ORAL, 500 MG;ORAL
     Route: 048
     Dates: start: 20080630, end: 20080702

REACTIONS (16)
  - ABDOMINAL TENDERNESS [None]
  - ANOREXIA [None]
  - ASTHENIA [None]
  - CARDIAC FAILURE ACUTE [None]
  - CARDIO-RESPIRATORY ARREST [None]
  - DIARRHOEA [None]
  - ELECTROCARDIOGRAM Q WAVES [None]
  - ELECTROMECHANICAL DISSOCIATION [None]
  - FEBRILE NEUTROPENIA [None]
  - HAEMOGLOBIN DECREASED [None]
  - PNEUMONIA [None]
  - PURPURA [None]
  - SINUS TACHYCARDIA [None]
  - SYNCOPE [None]
  - THROMBOCYTOPENIA [None]
  - WEIGHT DECREASED [None]
